FAERS Safety Report 16878095 (Version 1)
Quarter: 2019Q4

REPORT INFORMATION
  Report Type: Spontaneous
  Country: US (occurrence: US)
  Receive Date: 20191002
  Receipt Date: 20191002
  Transmission Date: 20200122
  Serious: No
  Sender: FDA-Public Use
  Company Number: US-PFIZER INC-2019424403

PATIENT
  Age: 60 Year
  Sex: Female
  Weight: 53.5 kg

DRUGS (1)
  1. IBRANCE [Suspect]
     Active Substance: PALBOCICLIB
     Indication: BREAST CANCER FEMALE
     Dosage: 125 MG, CYCLIC (ON DAYS 1-21 OF A 28-DAY CYCLE)
     Route: 048
     Dates: start: 20190920

REACTIONS (2)
  - Vomiting [Unknown]
  - Dysphagia [Unknown]
